FAERS Safety Report 6634661-3 (Version None)
Quarter: 2010Q1

REPORT INFORMATION
  Report Type: 
  Country: None (occurrence: None)
  Receive Date: 20100315
  Receipt Date: 20100304
  Transmission Date: 20100710
  Serious: Yes (Hospitalization)
  Sender: FDA-Public Use
  Company Number: B0639706A

PATIENT
  Age: 89 Year
  Sex: Male

DRUGS (5)
  1. KREDEX [Suspect]
     Route: 048
     Dates: end: 20100206
  2. ATACAND [Concomitant]
     Route: 065
  3. MOVICOL [Concomitant]
     Route: 065
  4. ATROVENT [Concomitant]
     Route: 065
  5. TROMBYL [Concomitant]
     Route: 065

REACTIONS (2)
  - ORTHOSTATIC HYPERTENSION [None]
  - SYNCOPE [None]
